FAERS Safety Report 9279584 (Version 2)
Quarter: 2013Q4

REPORT INFORMATION
  Report Type: Report from Study
  Country: FR (occurrence: FR)
  Receive Date: 20130509
  Receipt Date: 20131008
  Transmission Date: 20140711
  Serious: Yes (Hospitalization)
  Sender: FDA-Public Use
  Company Number: FR-ROCHE-1222060

PATIENT
  Age: 71 Year
  Sex: Male
  Weight: 62 kg

DRUGS (7)
  1. RITUXIMAB [Suspect]
     Indication: CHRONIC LYMPHOCYTIC LEUKAEMIA
     Dosage: LOADING DOSE
     Route: 042
     Dates: start: 20101123, end: 20110215
  2. RITUXIMAB [Suspect]
     Dosage: MAINTENANCE DOSE
     Route: 042
     Dates: start: 20110621, end: 20130305
  3. FLUDARABINE [Suspect]
     Indication: CHRONIC LYMPHOCYTIC LEUKAEMIA
     Dosage: 210 MG PER CYCLE
     Route: 048
     Dates: start: 20101124, end: 20110217
  4. ENDOXAN [Suspect]
     Indication: CHRONIC LYMPHOCYTIC LEUKAEMIA
     Dosage: 450 MG PER CYCLE
     Route: 048
     Dates: start: 20101124, end: 20110217
  5. THALIDOMIDE [Concomitant]
     Route: 048
     Dates: start: 20130425
  6. ZELITREX [Concomitant]
     Route: 065
     Dates: start: 20101116, end: 20130429
  7. BACTRIM FORTE [Concomitant]
     Route: 048
     Dates: start: 20101207

REACTIONS (1)
  - Aphthous stomatitis [Recovered/Resolved]
